FAERS Safety Report 10081654 (Version 1)
Quarter: 2014Q2

REPORT INFORMATION
  Report Type: Spontaneous
  Country: GB (occurrence: None)
  Receive Date: 20140414
  Receipt Date: 20140414
  Transmission Date: 20141212
  Serious: Yes (Other)
  Sender: FDA-Public Use
  Company Number: 2283549

PATIENT
  Age: 57 Year
  Sex: Male

DRUGS (2)
  1. METHOTREXATE [Suspect]
  2. METHOTREXATE SODIUM [Suspect]
     Route: 048

REACTIONS (3)
  - Malaise [None]
  - Musculoskeletal disorder [None]
  - Neck surgery [None]
